FAERS Safety Report 9530307 (Version 2)
Quarter: 2013Q3

REPORT INFORMATION
  Report Type: Spontaneous
  Country: IT (occurrence: IT)
  Receive Date: 20130917
  Receipt Date: 20130924
  Transmission Date: 20140515
  Serious: Yes (Death)
  Sender: FDA-Public Use
  Company Number: IT-ROCHE-1275777

PATIENT
  Age: 63 Year
  Sex: Female

DRUGS (1)
  1. XELODA [Suspect]
     Indication: COLON CANCER
     Route: 048
     Dates: start: 20130805, end: 20130818

REACTIONS (4)
  - Sudden cardiac death [Fatal]
  - Gastrointestinal toxicity [Fatal]
  - Neutropenia [Fatal]
  - Thrombocytopenia [Fatal]
